FAERS Safety Report 15322031 (Version 1)
Quarter: 2018Q3

REPORT INFORMATION
  Report Type: Spontaneous
  Country: US (occurrence: US)
  Receive Date: 20180821
  Receipt Date: 20180821
  Transmission Date: 20181010
  Serious: No
  Sender: FDA-Public Use
  Company Number: None

PATIENT
  Age: 73 Year
  Sex: Female
  Weight: 49.9 kg

DRUGS (10)
  1. FISH OIL [Concomitant]
     Active Substance: FISH OIL
  2. ELIQUIS [Suspect]
     Active Substance: APIXABAN
     Indication: ATRIAL FIBRILLATION
     Dosage: ?          QUANTITY:1 PILL;OTHER FREQUENCY:TWICE;?
     Route: 048
     Dates: start: 201805, end: 20180709
  3. BYSTOLIC [Concomitant]
     Active Substance: NEBIVOLOL HYDROCHLORIDE
  4. ALENDRONATE [Concomitant]
     Active Substance: ALENDRONATE SODIUM
  5. MULTI VIT. [Concomitant]
  6. COLCRYS [Concomitant]
     Active Substance: COLCHICINE
  7. SIMVASTATIN. [Concomitant]
     Active Substance: SIMVASTATIN
  8. FLECAINIDE [Concomitant]
     Active Substance: FLECAINIDE
  9. DILTIAZEM. [Concomitant]
     Active Substance: DILTIAZEM
  10. VITAMIN D [Concomitant]
     Active Substance: CHOLECALCIFEROL

REACTIONS (2)
  - Post procedural haemorrhage [None]
  - Epistaxis [None]

NARRATIVE: CASE EVENT DATE: 20180713
